FAERS Safety Report 9119428 (Version 1)
Quarter: 2013Q1

REPORT INFORMATION
  Report Type: Spontaneous
  Country: US (occurrence: None)
  Receive Date: 20130222
  Receipt Date: 20130222
  Transmission Date: 20140127
  Serious: No
  Sender: FDA-Public Use
  Company Number: None

PATIENT
  Age: 52 Year
  Sex: Female

DRUGS (2)
  1. CVS ALLERGY RELIEF, LORATDINE 10MG RANBAXY MANUFACTURER [Suspect]
     Indication: MULTIPLE ALLERGIES
     Dosage: 10 MG  QD  ORAL?APPROX - SEPT. 5 - SEPT. 11, 2012
     Route: 048
     Dates: start: 20120905, end: 20120911
  2. CVS ALLERGY RELIEF, LORATDINE 10MG RANBAXY MANUFACTURER [Suspect]
     Indication: EYE PRURITUS
     Dosage: 10 MG  QD  ORAL?APPROX - SEPT. 5 - SEPT. 11, 2012
     Route: 048
     Dates: start: 20120905, end: 20120911

REACTIONS (3)
  - Product taste abnormal [None]
  - Product odour abnormal [None]
  - Drug ineffective [None]
